FAERS Safety Report 7790763-X (Version None)
Quarter: 2011Q3

REPORT INFORMATION
  Report Type: 
  Country: None (occurrence: None)
  Receive Date: 20110930
  Receipt Date: 20110902
  Transmission Date: 20111222
  Serious: Yes (Hospitalization, Other)
  Sender: FDA-Public Use
  Company Number: PHHY2011FR82671

PATIENT
  Age: 77 Year
  Sex: Male

DRUGS (8)
  1. EXELON [Suspect]
     Dosage: 4.6 MG DAILY
     Route: 062
     Dates: start: 20091019
  2. NEURONTIN [Concomitant]
     Dosage: 600 MG DAILY
     Dates: start: 20091012
  3. NEURONTIN [Concomitant]
     Dosage: 1200 MG DAILY
  4. EXELON [Suspect]
     Dosage: 9.5 MG/24 HR
     Route: 062
  5. ALDACTAZIDE [Concomitant]
     Dosage: 0.5 DF, QD
  6. PHENOBARBITAL TAB [Concomitant]
     Dosage: 10 MG, QD
  7. TIAPRIDAL [Concomitant]
     Dosage: 100 MG, TID
  8. ESCITALOPRAM [Suspect]
     Dosage: 15 MG DAILY

REACTIONS (8)
  - RENAL FAILURE [None]
  - ANXIETY [None]
  - CONVULSION [None]
  - AGITATION [None]
  - CREATININE RENAL CLEARANCE DECREASED [None]
  - CONFUSIONAL STATE [None]
  - STATUS EPILEPTICUS [None]
  - SUICIDAL IDEATION [None]
